FAERS Safety Report 20391617 (Version 1)
Quarter: 2022Q1

REPORT INFORMATION
  Report Type: Other
  Country: None (occurrence: AU)
  Receive Date: 20220128
  Receipt Date: 20220128
  Transmission Date: 20220424
  Serious: Yes (Life-Threatening, Hospitalization, Other)
  Sender: FDA-Public Use
  Company Number: AU-YoungTech Pharmaceuticals, Inc.-2124400

PATIENT
  Sex: Female

DRUGS (5)
  1. METOPROLOL TARTRATE [Suspect]
     Active Substance: METOPROLOL TARTRATE
     Indication: Product used for unknown indication
     Route: 048
  2. CARBAMAZEPINE [Suspect]
     Active Substance: CARBAMAZEPINE
     Route: 048
  3. DIAZEPAM [Suspect]
     Active Substance: DIAZEPAM
     Route: 048
  4. PRAZOSIN [Suspect]
     Active Substance: PRAZOSIN
     Route: 048
  5. ESCITALOPRAM [Suspect]
     Active Substance: ESCITALOPRAM OXALATE
     Route: 065

REACTIONS (6)
  - Intentional overdose [Recovering/Resolving]
  - Neurotoxicity [Recovering/Resolving]
  - Blood pressure systolic decreased [Unknown]
  - Seizure [Recovering/Resolving]
  - Thrombocytopenia [Recovered/Resolved]
  - Coma scale abnormal [Unknown]
